FAERS Safety Report 19776457 (Version 1)
Quarter: 2021Q3

REPORT INFORMATION
  Report Type: Spontaneous
  Country: US (occurrence: US)
  Receive Date: 20210901
  Receipt Date: 20210901
  Transmission Date: 20211014
  Serious: No
  Sender: FDA-Public Use
  Company Number: US-LANNETT COMPANY, INC.-US-2020LAN000298

PATIENT
  Age: 88 Year
  Sex: Female

DRUGS (1)
  1. LACTULOSE. [Suspect]
     Active Substance: LACTULOSE
     Indication: CONSTIPATION
     Dosage: 2 TABLESPOONS
     Route: 048

REACTIONS (8)
  - Nausea [Unknown]
  - Illness [Unknown]
  - Product odour abnormal [Unknown]
  - Vomiting [Unknown]
  - Asthenia [Unknown]
  - Feeding disorder [Unknown]
  - Abdominal discomfort [Unknown]
  - Product colour issue [Unknown]

NARRATIVE: CASE EVENT DATE: 202009
